FAERS Safety Report 4467712-5 (Version None)
Quarter: 2004Q4

REPORT INFORMATION
  Report Type: 
  Country: None (occurrence: None)
  Receive Date: 20041007
  Receipt Date: 20040930
  Transmission Date: 20050328
  Serious: Yes (Hospitalization, Other)
  Sender: FDA-Public Use
  Company Number: US-JNJFOC-20041000671

PATIENT
  Age: 19 Year
  Sex: Female

DRUGS (4)
  1. INFLIXIMAB [Suspect]
     Indication: CROHN'S DISEASE
     Route: 042
  2. METHYLPREDNISOLONE [Concomitant]
     Indication: CROHN'S DISEASE
  3. MESALAMINE [Concomitant]
     Indication: CROHN'S DISEASE
  4. AZATHIOPRINE [Concomitant]
     Indication: CROHN'S DISEASE

REACTIONS (3)
  - HEPATITIS [None]
  - LEUKOPENIA [None]
  - PNEUMONIA CYTOMEGALOVIRAL [None]
